FAERS Safety Report 6601199-9 (Version None)
Quarter: 2010Q1

REPORT INFORMATION
  Report Type: 
  Country: None (occurrence: None)
  Receive Date: 20100224
  Receipt Date: 20100224
  Transmission Date: 20100710
  Serious: Yes (Other)
  Sender: FDA-Public Use
  Company Number: None

PATIENT
  Age: 69 Year
  Sex: Female
  Weight: 59.8748 kg

DRUGS (1)
  1. MINOXIDIL (FOR WOMEN) [Suspect]
     Indication: HIRSUTISM
     Dosage: 1 ML - MORNING; 1 ML - NIGHT 2X DAY
     Dates: start: 20091205, end: 20100130

REACTIONS (2)
  - DYSPNOEA [None]
  - HAIR GROWTH ABNORMAL [None]
